FAERS Safety Report 17447266 (Version 1)
Quarter: 2020Q1

REPORT INFORMATION
  Report Type: Spontaneous
  Country: GB (occurrence: GB)
  Receive Date: 20200221
  Receipt Date: 20200221
  Transmission Date: 20200409
  Serious: Yes (Hospitalization)
  Sender: FDA-Public Use
  Company Number: GB-TEVA-2020-GB-1189810

PATIENT
  Age: 85 Year
  Sex: Male
  Weight: 92 kg

DRUGS (12)
  1. CASSIA [Concomitant]
     Dosage: TAKE 1 OR 2 AT NIGHT
     Dates: start: 20190628
  2. TAMSULOSIN HYDROCHLORIDE. [Concomitant]
     Active Substance: TAMSULOSIN HYDROCHLORIDE
     Dosage: 1 DOSAGE FORMS 1 DAYS
     Dates: start: 20190628
  3. THEICAL-D3 [Concomitant]
     Dosage: 1 DOSAGE FORMS 1 DAYS
     Dates: start: 20190628, end: 20200123
  4. PARACETAMOL [Concomitant]
     Active Substance: ACETAMINOPHEN
     Dosage: TAKE 1 OR 2 4 TIMES/DAY
     Dates: start: 20190628
  5. LOSARTAN. [Concomitant]
     Active Substance: LOSARTAN
     Dosage: 1 DOSAGE FORMS 1 DAYS
     Dates: start: 20190628
  6. LANSOPRAZOLE. [Concomitant]
     Active Substance: LANSOPRAZOLE
     Dosage: 1 DOSAGE FORMS 1 DAYS
     Dates: start: 20190628
  7. PREDNISOLONE. [Concomitant]
     Active Substance: PREDNISOLONE
     Dosage: 1 DOSAGE FORMS 1 DAYS
     Dates: start: 20190628
  8. PREGABALIN. [Concomitant]
     Active Substance: PREGABALIN
     Indication: PAIN
     Dosage: 1 DOSAGE FORMS DAILY; MORNING
     Dates: start: 20190628
  9. CETIRIZINE [Concomitant]
     Active Substance: CETIRIZINE HYDROCHLORIDE
     Dosage: 1 DOSAGE FORMS 1 DAYS
     Dates: start: 20190628
  10. ACICLOVIR [Suspect]
     Active Substance: ACYCLOVIR
     Dosage: 4000 MG 1 DAYS
     Dates: start: 20200203
  11. CALCI-D [Concomitant]
     Active Substance: CALCIUM CARBONATE\CHOLECALCIFEROL
     Dosage: 1 DOSAGE FORMS 1 DAYS
     Dates: start: 20200123
  12. FERROUS FUMARATE [Concomitant]
     Active Substance: FERROUS FUMARATE
     Dosage: 1 DOSAGE FORMS 1 DAYS
     Dates: start: 20190628

REACTIONS (2)
  - Wheezing [Unknown]
  - Pharyngeal swelling [Unknown]

NARRATIVE: CASE EVENT DATE: 20200205
